FAERS Safety Report 8135798-2 (Version None)
Quarter: 2012Q1

REPORT INFORMATION
  Report Type: 
  Country: None (occurrence: None)
  Receive Date: 20120103
  Receipt Date: 20111107
  Transmission Date: 20120608
  Serious: No
  Sender: FDA-Public Use
  Company Number: AE-2011-003099

PATIENT
  Age: 41 Year
  Sex: Male
  Weight: 104.3273 kg

DRUGS (3)
  1. INCIVEK [Suspect]
     Dosage: 2250 MG (750 MG, 3 IN 1 D), ORAL
     Route: 048
     Dates: start: 20111014
  2. PEGINTERERON (PEGINTERFERON ALFA-2A) [Concomitant]
  3. RIBAVIRIN [Concomitant]

REACTIONS (4)
  - HAEMOPTYSIS [None]
  - THROAT IRRITATION [None]
  - DIZZINESS [None]
  - ANORECTAL DISCOMFORT [None]
